FAERS Safety Report 6786582-3 (Version None)
Quarter: 2010Q2

REPORT INFORMATION
  Report Type: 
  Country: None (occurrence: None)
  Receive Date: 20100623
  Receipt Date: 20100610
  Transmission Date: 20101027
  Serious: Yes (Hospitalization, Other)
  Sender: FDA-Public Use
  Company Number: US-ELI_LILLY_AND_COMPANY-US201006003683

PATIENT
  Sex: Female

DRUGS (17)
  1. FORTEO [Suspect]
     Indication: OSTEOPOROSIS
     Dosage: 20 UG, DAILY (1/D)
     Dates: start: 20090820, end: 20100609
  2. ATENOLOL [Concomitant]
  3. AZOR [Concomitant]
  4. LYRICA [Concomitant]
     Dosage: 1 D/F, 2/D
  5. OMEPRAZOLE [Concomitant]
  6. CALCIUM W/VITAMIN D NOS [Concomitant]
     Dosage: 600 MG, UNKNOWN
  7. ACIDOPHILUS [Concomitant]
     Indication: GASTRIC DISORDER
     Dosage: 1 D/F, DAILY (1/D)
  8. CENTRUM [Concomitant]
     Dosage: 1 D/F, DAILY (1/D)
  9. VITAMIN C [Concomitant]
  10. ASPIRIN [Concomitant]
     Dosage: 1 D/F, DAILY (1/D)
  11. GLUCOSAMINE SULFATE [Concomitant]
     Dosage: 1000 MG, UNKNOWN
  12. LASIX [Concomitant]
     Dosage: 20 MG, AS NEEDED
  13. MSM [Concomitant]
     Dosage: 1500 MG, 2/D
  14. VITAMIN B3 [Concomitant]
     Dosage: 500 MG, DAILY (1/D)
  15. VITAMIN B6 [Concomitant]
     Dosage: 100 MG, DAILY (1/D)
  16. VITAMIN E [Concomitant]
     Dosage: 400 U, 2/D
  17. LORTAB [Concomitant]
     Indication: PAIN
     Dosage: 1 D/F, AS NEEDED

REACTIONS (8)
  - BLOOD CALCIUM INCREASED [None]
  - BLOOD ELECTROLYTES ABNORMAL [None]
  - BLOOD POTASSIUM INCREASED [None]
  - FALL [None]
  - JOINT INJURY [None]
  - MUSCULAR WEAKNESS [None]
  - MUSCULOSKELETAL DISORDER [None]
  - MUSCULOSKELETAL PAIN [None]
